FAERS Safety Report 8010042-5 (Version None)
Quarter: 2011Q4

REPORT INFORMATION
  Report Type: 
  Country: None (occurrence: None)
  Receive Date: 20111228
  Receipt Date: 20111215
  Transmission Date: 20120403
  Serious: Yes (Other)
  Sender: FDA-Public Use
  Company Number: CA-JNJFOC-20111208578

PATIENT
  Sex: Female
  Weight: 53 kg

DRUGS (2)
  1. REMICADE [Suspect]
     Indication: UVEITIS
     Dates: start: 20080101, end: 20111201
  2. REMICADE [Suspect]
     Indication: JUVENILE ARTHRITIS
     Dates: start: 20080101, end: 20111201

REACTIONS (1)
  - PSORIASIS [None]
